FAERS Safety Report 17815242 (Version 3)
Quarter: 2020Q2

REPORT INFORMATION
  Report Type: Spontaneous
  Country: US (occurrence: US)
  Receive Date: 20200522
  Receipt Date: 20200616
  Transmission Date: 20200714
  Serious: No
  Sender: FDA-Public Use
  Company Number: US-GLAXOSMITHKLINE-US2020085239

PATIENT
  Sex: Female
  Weight: 67.12 kg

DRUGS (1)
  1. NUCALA [Suspect]
     Active Substance: MEPOLIZUMAB
     Indication: ASTHMA
     Dosage: UNK
     Route: 058
     Dates: start: 202001

REACTIONS (3)
  - Product dose omission [Unknown]
  - Product complaint [Unknown]
  - Social problem [Unknown]

NARRATIVE: CASE EVENT DATE: 2020
